FAERS Safety Report 23034483 (Version 1)
Quarter: 2023Q4

REPORT INFORMATION
  Report Type: Spontaneous
  Country: US (occurrence: US)
  Receive Date: 20231005
  Receipt Date: 20231005
  Transmission Date: 20240110
  Serious: Yes (Hospitalization, Other)
  Sender: FDA-Public Use
  Company Number: US-SUN PHARMACEUTICAL INDUSTRIES LTD-2023R1-411252

PATIENT
  Age: 53 Year
  Sex: Male

DRUGS (1)
  1. TIZANIDINE [Suspect]
     Active Substance: TIZANIDINE
     Indication: Back pain
     Dosage: 30 MILLIGRAM, DAILY
     Route: 065

REACTIONS (3)
  - Drug withdrawal syndrome [Recovering/Resolving]
  - Acute kidney injury [Unknown]
  - Acute myocardial infarction [Unknown]
